FAERS Safety Report 4494927-2 (Version None)
Quarter: 2004Q4

REPORT INFORMATION
  Report Type: 
  Country: None (occurrence: None)
  Receive Date: 20041104
  Receipt Date: 20041104
  Transmission Date: 20050328
  Serious: No
  Sender: FDA-Public Use
  Company Number: None

PATIENT
  Age: 48 Year
  Sex: Male
  Weight: 81.6475 kg

DRUGS (2)
  1. SUBOXONE [Suspect]
     Indication: DRUG DEPENDENCE
     Dosage: 2MG SL Q 4 HRS PRN SEVERAL WEEKS
     Route: 060
  2. DIAZEPAM [Concomitant]

REACTIONS (2)
  - URINARY RETENTION [None]
  - VISION BLURRED [None]
